FAERS Safety Report 15153525 (Version 2)
Quarter: 2018Q4

REPORT INFORMATION
  Report Type: Report from Study
  Country: DE (occurrence: DE)
  Receive Date: 20180717
  Receipt Date: 20181016
  Transmission Date: 20190204
  Serious: Yes (Hospitalization)
  Sender: FDA-Public Use
  Company Number: PHHY2018DE042079

PATIENT
  Sex: Male
  Weight: 70 kg

DRUGS (1)
  1. COSENTYX [Suspect]
     Active Substance: SECUKINUMAB
     Indication: PSORIASIS
     Dosage: 300 MG, UNK
     Route: 058
     Dates: start: 20170330, end: 20180430

REACTIONS (4)
  - Urinary tract infection [Recovered/Resolved]
  - Alcohol abuse [Recovered/Resolved]
  - Flank pain [Unknown]
  - Mental disorder [Recovered/Resolved]

NARRATIVE: CASE EVENT DATE: 201805
